FAERS Safety Report 8774036 (Version 1)
Quarter: 2012Q4

REPORT INFORMATION
  Report Type: 
  Country: US (occurrence: US)
  Receive Date: 20120907
  Receipt Date: 20120907
  Transmission Date: 20130627
  Serious: Yes (Other)
  Sender: FDA-Public Use
  Company Number: US-JNJFOC-20120900575

PATIENT
  Sex: Female

DRUGS (4)
  1. ROGAINE FOR WOMEN REGULAR STRENGTH [Suspect]
     Route: 061
  2. ROGAINE FOR WOMEN REGULAR STRENGTH [Suspect]
     Indication: ALOPECIA
     Route: 061
  3. ROGAINE FOR MEN EXTRA STRENGTH [Suspect]
  4. ROGAINE FOR MEN EXTRA STRENGTH [Suspect]
     Indication: ALOPECIA

REACTIONS (3)
  - Coeliac disease [Unknown]
  - Malaise [Unknown]
  - Wrong drug administered [Unknown]
